FAERS Safety Report 8975231 (Version 1)
Quarter: 2012Q4

REPORT INFORMATION
  Report Type: 
  Country: US (occurrence: US)
  Receive Date: 20121219
  Receipt Date: 20121219
  Transmission Date: 20130627
  Serious: No
  Sender: FDA-Public Use
  Company Number: US-AMGEN-USASP2012076052

PATIENT
  Age: 81 Year
  Sex: Female

DRUGS (4)
  1. PROLIA [Suspect]
     Indication: OSTEOPOROSIS POSTMENOPAUSAL
     Dosage: 60 mg, q6mo
     Dates: start: 20120301
  2. SIMVASTATIN [Concomitant]
     Dosage: 40 mg, UNK
  3. THYROID THERAPY [Concomitant]
  4. ANTIHYPERTENSIVES [Concomitant]
     Indication: BLOOD PRESSURE

REACTIONS (6)
  - Pain in jaw [Unknown]
  - Diarrhoea [Recovering/Resolving]
  - Oral pain [Unknown]
  - Chapped lips [Unknown]
  - Back pain [Unknown]
  - Mobility decreased [Unknown]
